FAERS Safety Report 7484902-8 (Version None)
Quarter: 2011Q2

REPORT INFORMATION
  Report Type: 
  Country: None (occurrence: None)
  Receive Date: 20110517
  Receipt Date: 20110506
  Transmission Date: 20111010
  Serious: Yes (Other)
  Sender: FDA-Public Use
  Company Number: A0927374A

PATIENT
  Sex: Male

DRUGS (3)
  1. NORVIR [Suspect]
     Indication: ANTIVIRAL TREATMENT
     Dosage: 100MGD PER DAY
     Route: 064
  2. REYATAZ [Suspect]
     Indication: ANTIVIRAL TREATMENT
     Dosage: 300MGD PER DAY
     Route: 064
     Dates: start: 20100610
  3. COMBIVIR [Suspect]
     Indication: ANTIVIRAL TREATMENT
     Dosage: 1TAB PER DAY
     Route: 064
     Dates: start: 20100610

REACTIONS (5)
  - PREMATURE BABY [None]
  - CEREBRAL PALSY [None]
  - NERVOUS SYSTEM DISORDER [None]
  - DRUG EXPOSURE DURING PREGNANCY [None]
  - HYPOXIC-ISCHAEMIC ENCEPHALOPATHY [None]
